FAERS Safety Report 17414445 (Version 2)
Quarter: 2021Q3

REPORT INFORMATION
  Report Type: Spontaneous
  Country: US (occurrence: US)
  Receive Date: 20200213
  Receipt Date: 20210806
  Transmission Date: 20211014
  Serious: Yes (Hospitalization, Other)
  Sender: FDA-Public Use
  Company Number: US-TEVA-2020-US-1183404

PATIENT
  Age: 63 Year
  Sex: Male
  Weight: 111.23 kg

DRUGS (51)
  1. VALSARTAN HYDROCHLOROTHIAZIDE SOLCO [Suspect]
     Active Substance: HYDROCHLOROTHIAZIDE\VALSARTAN
     Dosage: DOSE DETAILS: 25/160 MG
     Route: 048
     Dates: start: 20170203, end: 20180716
  2. VALSARTAN HYDROCHLOROTHIAZIDE MACLEODS [Suspect]
     Active Substance: HYDROCHLOROTHIAZIDE\VALSARTAN
     Indication: HYPERTENSION
     Dosage: DOSE DETAILS: 25/160 MG
     Route: 048
     Dates: start: 20181204, end: 20190531
  3. HYDRODIURIL [Concomitant]
     Active Substance: HYDROCHLOROTHIAZIDE
     Dosage: 12.5 MG, DAILY
     Route: 048
  4. SYNTHROID [Concomitant]
     Active Substance: LEVOTHYROXINE SODIUM
     Dosage: 112 MCG, QD6
     Route: 048
  5. ZOFRAN [Concomitant]
     Active Substance: ONDANSETRON HYDROCHLORIDE
     Indication: NAUSEA
     Dosage: DOSE DETAILS: 4 MG/2 ML SDV TABLET, 8 MILLIGRAM ORAL EVERY 6 HOURS AS NEEDED
     Route: 042
  6. ZOCOR [Concomitant]
     Active Substance: SIMVASTATIN
     Dosage: DOSE DETAILS: 40 MG, QD
     Route: 048
  7. NORCO [Concomitant]
     Active Substance: ACETAMINOPHEN\HYDROCODONE BITARTRATE
     Dosage: DOSE: 5?325 MG, Q4HP, PRN
     Route: 048
  8. SIMETHICONE (DIMETHICONE) [Concomitant]
     Active Substance: DIMETHICONE
     Dosage: DOSE: 40 MG/6 ML, 30 ML, BO
     Route: 048
  9. ENTEREG [Concomitant]
     Active Substance: ALVIMOPAN
     Dosage: DOSE: 12 MG
     Route: 048
  10. SYNTHROID [Concomitant]
     Active Substance: LEVOTHYROXINE SODIUM
     Dosage: DOSE: 112 MICROGRAM DAILY
     Route: 048
  11. GLYCOPYRROLATE. [Concomitant]
     Active Substance: GLYCOPYRROLATE
     Dosage: DOSE: 1MG/5 ML SYRINGE
     Route: 065
  12. VALSARTAN W/HYDROCHLOROTHIAZIDE TEVA [Suspect]
     Active Substance: HYDROCHLOROTHIAZIDE\VALSARTAN
     Indication: HYPERTENSION
     Dosage: DOSE DETAILS: 160/25 MG
     Route: 048
     Dates: start: 20121128, end: 20130226
  13. DIOVAN [Concomitant]
     Active Substance: VALSARTAN
     Indication: HYPERTENSION
     Dosage: 160 MG/1 DAILY
     Route: 048
     Dates: start: 20120404, end: 201209
  14. GOLYTELY [Concomitant]
     Active Substance: POLYETHYLENE GLYCOL 3350\POTASSIUM CHLORIDE\SODIUM BICARBONATE\SODIUM CHLORIDE\SODIUM SULFATE
     Dosage: ELECTROLYTE SOLUTION/PEG^S 4000 ML ORAL SOLUTION
     Route: 048
  15. SUBLIMAZE [Concomitant]
     Active Substance: FENTANYL CITRATE
     Dosage: 100 MCG/2 ML INJECTION
     Route: 065
  16. DILAUDID [Concomitant]
     Active Substance: HYDROMORPHONE HYDROCHLORIDE
     Dosage: DOSE: 1MG/ML CARPUJECT, EVERY 4 HOURS AS NEEDED
     Route: 065
  17. NEOSTIGMINE. [Concomitant]
     Active Substance: NEOSTIGMINE METHYLSULFATE
     Dosage: DOSE: 5 MG
     Route: 065
  18. ENOXAPARIN [Concomitant]
     Active Substance: ENOXAPARIN
     Dosage: DOSE: 40 MG, ONCE DAILY, ADJUST DAILY DOSING TO 30 ML, DAILY FOR CRCL LESS THAN 30
     Route: 058
  19. TYLENOL [Concomitant]
     Active Substance: ACETAMINOPHEN
     Dosage: 650 MG, EVERY 4 HOURS, PRN
     Route: 048
  20. COLACE [Concomitant]
     Active Substance: DOCUSATE SODIUM
     Dosage: 100 MG, BID
     Route: 048
  21. MORPHINE SULFATE. [Concomitant]
     Active Substance: MORPHINE SULFATE
     Dosage: DOSE DETAILS: 2 MG/ML, Q2HP, PRN
     Route: 042
  22. COMPAZINE [Concomitant]
     Active Substance: PROCHLORPERAZINE MALEATE
     Dosage: DOSE: 10 MILLIGRAM, EVERY 6 HOURS
     Route: 048
  23. KLOR?CON [Concomitant]
     Active Substance: POTASSIUM CHLORIDE
     Dosage: DOSE: 20 MILLIEQUIVALENT, DAILY
     Route: 048
  24. MIDAZOLAM. [Concomitant]
     Active Substance: MIDAZOLAM
     Dosage: 2 MG/2 ML, SDV
     Route: 065
  25. DIPRIVAN [Concomitant]
     Active Substance: PROPOFOL
     Dosage: DOSE: 10 MG/ML IV SOLUTION
     Route: 042
  26. EPHEDRINE SULFATE. [Concomitant]
     Active Substance: EPHEDRINE SULFATE
     Dosage: DOSE: 50 MG/10 ML SYRINGE
     Route: 065
  27. NEOSYNEPHRINE [Concomitant]
     Active Substance: PHENYLEPHRINE HYDROCHLORIDE
     Dosage: DOSE: 10 MG/ML SDV
     Route: 065
  28. BENAZEPRIL [Concomitant]
     Active Substance: BENAZEPRIL HYDROCHLORIDE
     Route: 048
  29. VALSARTAN W/HYDROCHLOROTHIAZIDE TEVA [Suspect]
     Active Substance: HYDROCHLOROTHIAZIDE\VALSARTAN
     Dosage: DOSE DETAILS: 160/25 MG
     Route: 048
     Dates: start: 20131218, end: 20141123
  30. VALSARTAN HYDROCHLOROTHIAZIDE SOLCO [Suspect]
     Active Substance: HYDROCHLOROTHIAZIDE\VALSARTAN
     Indication: HYPERTENSION
     Dosage: DOSE DETAILS: 25/160 MG
     Route: 048
     Dates: start: 20161104, end: 20170202
  31. VALSARTAN HYDROCHLOROTHIAZIDE LUPIN PHARMA [Suspect]
     Active Substance: HYDROCHLOROTHIAZIDE\VALSARTAN
     Indication: HYPERTENSION
     Dosage: DOSE DETAILS: 25/160 MG
     Route: 048
     Dates: start: 20150103, end: 20151202
  32. VALSARTAN HYDROCHLOROTHIAZIDE AUROBINDO [Suspect]
     Active Substance: HYDROCHLOROTHIAZIDE\VALSARTAN
     Indication: HYPERTENSION
     Dosage: DOSE DETAILS: 25/160 MG
     Route: 048
     Dates: start: 20180815, end: 20181113
  33. LEVEMIR [Concomitant]
     Active Substance: INSULIN DETEMIR
     Indication: DIABETES MELLITUS
     Dosage: 100 UNIT/1 ML INSULIN PEN, 80 UNITS SUBCUTANEOUSLY AT BED TIME
     Route: 058
     Dates: start: 200802
  34. INSULIN ASPART [Concomitant]
     Active Substance: INSULIN ASPART
     Dosage: 100 UNIT/1 ML INSULIN PEN UNITS
     Route: 058
  35. ZOFRAN [Concomitant]
     Active Substance: ONDANSETRON HYDROCHLORIDE
     Indication: VOMITING
  36. VALSARTAN W/HYDROCHLOROTHIAZIDE TEVA [Suspect]
     Active Substance: HYDROCHLOROTHIAZIDE\VALSARTAN
     Dosage: DOSE DETAILS: 160/25 MG
     Route: 048
     Dates: start: 20130723, end: 20131021
  37. VALSARTAN HYDROCHLOROTHIAZIDE LUPIN PHARMA [Suspect]
     Active Substance: HYDROCHLOROTHIAZIDE\VALSARTAN
     Dosage: DOSE DETAILS: 25/160 MG
     Route: 048
     Dates: start: 20160102, end: 20160925
  38. CHILDRENS ASPIRIN [Concomitant]
     Active Substance: ASPIRIN
     Dosage: DOSE: 81 MG/DAILY
     Route: 048
     Dates: start: 201310
  39. MARCAINE [Concomitant]
     Active Substance: BUPIVACAINE HYDROCHLORIDE
     Dosage: EPI?PF 0.25%
     Route: 065
  40. APRESOLINE HYDROCHLORIDE [Concomitant]
     Active Substance: HYDRALAZINE HYDROCHLORIDE
     Dosage: DOSE: 20 MG/ML, SDV, EVERY 4 HOURS AS NEEDED
     Route: 042
  41. METRONIDAZOLE. [Concomitant]
     Active Substance: METRONIDAZOLE
     Dosage: DOSE: IVPE PREMIXED AT 500 MG/100 ML
     Route: 065
  42. NEULASTA [Concomitant]
     Active Substance: PEGFILGRASTIM
     Indication: NEUTROPENIA
     Route: 065
  43. PROTONIX [Concomitant]
     Active Substance: PANTOPRAZOLE SODIUM
     Dosage: 1000 ML, Q12H30M
     Route: 042
  44. XYLOCAINE [Concomitant]
     Active Substance: LIDOCAINE HYDROCHLORIDE
     Indication: CARDIAC DISORDER
     Dosage: DOSE: 5 ML SDV
     Route: 065
  45. TYLOX [Concomitant]
     Active Substance: ACETAMINOPHEN\OXYCODONE HYDROCHLORIDE
     Dosage: DOSE: 5?500 MG,1 EACH CAPSULE, EVERY 4 HOURS AS NEEDED
     Route: 065
  46. SUCCINYLCHOLINE [Concomitant]
     Active Substance: SUCCINYLCHOLINE
     Dosage: DOSE: 200 MG/10 ML
     Route: 065
  47. ZEMURON [Concomitant]
     Active Substance: ROCURONIUM BROMIDE
     Dosage: DOSE: 100 MG
     Route: 065
  48. HEPARIN [Concomitant]
     Active Substance: HEPARIN SODIUM
     Dosage: DOSE: 5000 UNITS, EVERY 12 HOURS
     Route: 058
  49. BENADRYL [Concomitant]
     Active Substance: DIPHENHYDRAMINE HYDROCHLORIDE
     Dosage: DOSE: 100 MCG/2 ML VIAL
     Route: 065
  50. CEFAZOLIN [Concomitant]
     Active Substance: CEFAZOLIN
     Indication: BLOOD GLUCOSE
     Dosage: DOSE: 2 G/50 ML
     Route: 065
  51. BREVIBLOC [Concomitant]
     Active Substance: ESMOLOL HYDROCHLORIDE
     Dosage: DOSE: 100 MG/10 ML SDV
     Route: 065

REACTIONS (1)
  - Colorectal adenocarcinoma [Recovered/Resolved]
